FAERS Safety Report 18155225 (Version 1)
Quarter: 2020Q3

REPORT INFORMATION
  Report Type: Spontaneous
  Country: US (occurrence: US)
  Receive Date: 20200817
  Receipt Date: 20200817
  Transmission Date: 20201103
  Serious: No
  Sender: FDA-Public Use
  Company Number: US-ALLERGAN-2017748US

PATIENT
  Age: 43 Year
  Sex: Male

DRUGS (4)
  1. KENALOG CREAM [Concomitant]
     Indication: KERATOSIS PILARIS
     Dosage: UNK
     Route: 061
  2. OTHER TESTOSTERONE SUPPLEMENTS (UNSPECIFIED) [Concomitant]
     Indication: SECONDARY HYPOGONADISM
  3. ANDRODERM [Suspect]
     Active Substance: TESTOSTERONE
     Indication: SECONDARY HYPOGONADISM
     Dosage: 2 MG
     Route: 062
     Dates: start: 201911
  4. AVEENO BODY LOTION [Concomitant]
     Indication: KERATOSIS PILARIS
     Dosage: UNK
     Route: 061

REACTIONS (2)
  - Injection site urticaria [Not Recovered/Not Resolved]
  - Inappropriate schedule of product administration [Unknown]

NARRATIVE: CASE EVENT DATE: 201911
